FAERS Safety Report 7800784-6 (Version None)
Quarter: 2011Q4

REPORT INFORMATION
  Report Type: 
  Country: None (occurrence: None)
  Receive Date: 20111006
  Receipt Date: 20110926
  Transmission Date: 20120403
  Serious: Yes (Life-Threatening, Hospitalization, Other)
  Sender: FDA-Public Use
  Company Number: CZ-ABBOTT-11P-217-0851821-00

PATIENT
  Age: 15 Year
  Sex: Female

DRUGS (4)
  1. VALPROIC ACID [Suspect]
     Indication: EPILEPSY
  2. CARBAMAZEPINE [Interacting]
     Indication: EPILEPSY
  3. PHENOBARBITAL TAB [Interacting]
     Indication: EPILEPSY
     Dosage: DAILY
     Route: 042
  4. PRIMIDONE [Interacting]
     Indication: EPILEPSY

REACTIONS (7)
  - DELIRIUM [None]
  - HALLUCINATION [None]
  - ALTERED STATE OF CONSCIOUSNESS [None]
  - TOXICITY TO VARIOUS AGENTS [None]
  - EPILEPSY [None]
  - DRUG INTERACTION [None]
  - HYPERAMMONAEMIA [None]
